FAERS Safety Report 5931933-2 (Version None)
Quarter: 2008Q4

REPORT INFORMATION
  Report Type: 
  Country: None (occurrence: None)
  Receive Date: 20081027
  Receipt Date: 20081017
  Transmission Date: 20090506
  Serious: Yes (Hospitalization)
  Sender: FDA-Public Use
  Company Number: PHHY2008FR25358

PATIENT

DRUGS (2)
  1. ESIDRIX [Suspect]
     Indication: HYPERTENSION
     Dosage: 1 DF, QD
     Route: 048
     Dates: end: 20080915
  2. APROVEL [Suspect]
     Indication: HYPERTENSION
     Dosage: 300 MG, QD

REACTIONS (10)
  - BLOOD CREATININE INCREASED [None]
  - DIARRHOEA [None]
  - FOOD POISONING [None]
  - HYPOKALAEMIA [None]
  - HYPONATRAEMIA [None]
  - HYPOTENSION [None]
  - LOSS OF CONSCIOUSNESS [None]
  - NEUROGENIC SHOCK [None]
  - RENAL FAILURE ACUTE [None]
  - VOMITING [None]
